FAERS Safety Report 7536443-7 (Version None)
Quarter: 2011Q2

REPORT INFORMATION
  Report Type: 
  Country: None (occurrence: None)
  Receive Date: 20110609
  Receipt Date: 20110422
  Transmission Date: 20111010
  Serious: Yes (Hospitalization)
  Sender: FDA-Public Use
  Company Number: IT-ASTRAZENECA-2011SE23577

PATIENT
  Sex: Female

DRUGS (4)
  1. MODURETIC 5-50 [Concomitant]
     Indication: HYPERTENSION
     Route: 048
  2. IRESSA [Suspect]
     Indication: NON-SMALL CELL LUNG CANCER STAGE IV
     Route: 048
     Dates: start: 20101130, end: 20101202
  3. EUTIROX [Concomitant]
     Indication: HYPOTHYROIDISM
     Route: 048
  4. PARACODINA [Concomitant]
     Indication: COUGH
     Route: 048

REACTIONS (2)
  - EMBOLIC STROKE [None]
  - HEMIPLEGIA [None]
